FAERS Safety Report 7261046-1 (Version None)
Quarter: 2011Q1

REPORT INFORMATION
  Report Type: 
  Country: None (occurrence: None)
  Receive Date: 20110130
  Receipt Date: 20101124
  Transmission Date: 20110831
  Serious: No
  Sender: FDA-Public Use
  Company Number: US-ABBOTT-10P-163-0687605-00

PATIENT
  Sex: Female
  Weight: 81.72 kg

DRUGS (15)
  1. LORATADINE [Concomitant]
     Indication: HYPERSENSITIVITY
  2. HUMIRA [Suspect]
     Indication: RHEUMATOID ARTHRITIS
     Dates: start: 20101023
  3. LEXAPRO [Concomitant]
     Indication: DEPRESSION
  4. OXYGEN [Concomitant]
     Indication: SLEEP APNOEA SYNDROME
     Dosage: CPAP MACHINE AT NIGHT
  5. ACIDOPHILUS [Concomitant]
     Indication: COELIAC DISEASE
  6. VITAMIN D [Concomitant]
     Indication: VITAMIN SUPPLEMENTATION
  7. CALCIUM [Concomitant]
     Indication: MINERAL SUPPLEMENTATION
  8. LEVOTHYROXINE SODIUM [Concomitant]
     Indication: HYPOTHYROIDISM
  9. PRILOSEC [Concomitant]
     Indication: COELIAC DISEASE
  10. METAMUCIL-2 [Concomitant]
     Indication: MEDICAL DIET
  11. FISH OIL [Concomitant]
     Indication: MEDICAL DIET
  12. ROLAIDS [Concomitant]
     Indication: COELIAC DISEASE
  13. LEFLUNOMIDE [Concomitant]
     Indication: RHEUMATOID ARTHRITIS
  14. ALPRAZOLAM [Concomitant]
     Indication: INSOMNIA
  15. BENTYL [Concomitant]
     Indication: ABDOMINAL PAIN UPPER

REACTIONS (3)
  - HAEMORRHAGE [None]
  - PAIN IN EXTREMITY [None]
  - LACERATION [None]
